FAERS Safety Report 8915591 (Version 1)
Quarter: 2012Q4

REPORT INFORMATION
  Report Type: Report from Study
  Country: US (occurrence: US)
  Receive Date: 20121119
  Receipt Date: 20121119
  Transmission Date: 20130627
  Serious: Yes (Other)
  Sender: FDA-Public Use
  Company Number: US-JNJFOC-20121108442

PATIENT
  Sex: Male

DRUGS (2)
  1. REMICADE [Suspect]
     Indication: PSORIASIS
     Route: 042
     Dates: start: 2012
  2. REMICADE [Suspect]
     Indication: PSORIASIS
     Route: 042

REACTIONS (21)
  - Dysphagia [Unknown]
  - Dyspnoea [Unknown]
  - Haemoptysis [Unknown]
  - Wheezing [Unknown]
  - Chest pain [Unknown]
  - Raynaud^s phenomenon [Unknown]
  - Visual impairment [Unknown]
  - Pyrexia [Unknown]
  - Chills [Unknown]
  - Night sweats [Unknown]
  - Weight decreased [Unknown]
  - Fatigue [Unknown]
  - Headache [Unknown]
  - Eye pain [Unknown]
  - Ocular hyperaemia [Unknown]
  - Dry eye [Unknown]
  - Mouth ulceration [Unknown]
  - Cough [Unknown]
  - Palpitations [Unknown]
  - Exercise tolerance decreased [Unknown]
  - Psoriasis [Unknown]
